FAERS Safety Report 8157471-7 (Version None)
Quarter: 2012Q1

REPORT INFORMATION
  Report Type: 
  Country: None (occurrence: None)
  Receive Date: 20120222
  Receipt Date: 20120126
  Transmission Date: 20120608
  Serious: Yes (Other)
  Sender: FDA-Public Use
  Company Number: FR-PFIZER INC-K201001304

PATIENT
  Age: 56 Year
  Sex: Female

DRUGS (4)
  1. ALTACE [Suspect]
     Dosage: 1.25 MG, 1X/DAY
     Route: 048
     Dates: start: 20100722, end: 20100803
  2. LANSOPRAZOLE [Concomitant]
     Dosage: UNK
     Dates: start: 20070101
  3. LORATADINE [Concomitant]
     Dosage: UNK
     Dates: start: 20090424
  4. AMOXICILLIN AND CLAVULANATE POTASSIUM [Concomitant]
     Dosage: UNK
     Dates: start: 20100708

REACTIONS (3)
  - RASH [None]
  - WHEEZING [None]
  - DYSPNOEA [None]
